FAERS Safety Report 7702765-X (Version None)
Quarter: 2011Q3

REPORT INFORMATION
  Report Type: 
  Country: None (occurrence: None)
  Receive Date: 20110823
  Receipt Date: 20110810
  Transmission Date: 20111222
  Serious: Yes (Death, Hospitalization)
  Sender: FDA-Public Use
  Company Number: US-CELGENEUS-163-21880-11072056

PATIENT
  Sex: Male
  Weight: 88.5 kg

DRUGS (4)
  1. ZOMETA [Concomitant]
     Dosage: 4 MILLIGRAM
     Route: 041
     Dates: start: 20110310, end: 20110412
  2. REVLIMID [Suspect]
     Indication: MULTIPLE MYELOMA
     Dosage: 25 MILLIGRAM
     Route: 048
     Dates: start: 20110311, end: 20110420
  3. DECADRON [Concomitant]
     Indication: MULTIPLE MYELOMA
     Dosage: 40 MILLIGRAM
     Route: 048
     Dates: start: 20110301, end: 20110423
  4. VELCADE [Concomitant]
     Indication: MULTIPLE MYELOMA
     Dosage: 3 MILLIGRAM
     Route: 041
     Dates: start: 20110310, end: 20110419

REACTIONS (1)
  - EXTRADURAL ABSCESS [None]
